FAERS Safety Report 9856582 (Version 2)
Quarter: 2014Q1

REPORT INFORMATION
  Report Type: Spontaneous
  Country: US (occurrence: US)
  Receive Date: 20140130
  Receipt Date: 20140130
  Transmission Date: 20141002
  Serious: Yes (Other)
  Sender: FDA-Public Use
  Company Number: US-GILEAD-2013-0072261

PATIENT
  Age: 38 Year
  Sex: Male
  Weight: 79.37 kg

DRUGS (26)
  1. COMPLERA [Suspect]
     Indication: HIV INFECTION
     Dosage: 1 DF, QD
     Route: 048
     Dates: start: 20130107
  2. TRUVADA [Concomitant]
     Dosage: UNK
  3. VIREAD [Concomitant]
     Dosage: UNK
     Dates: start: 2004
  4. ISENTRESS [Concomitant]
  5. ATAZANAVIR [Concomitant]
  6. ABACAVIR [Concomitant]
  7. SAQUINAVIR [Concomitant]
  8. CRIXIVAN [Concomitant]
  9. ZERIT [Concomitant]
  10. VIRACEPT [Concomitant]
  11. EPIVIR [Concomitant]
  12. ATENOLOL [Concomitant]
     Dosage: 25 MG, QD
     Route: 048
  13. CHLORPROMAZINE [Concomitant]
     Dosage: 100 MG, QID
     Route: 048
  14. CHLORPROMAZINE [Concomitant]
     Dosage: 200 MG, UNK
     Route: 048
  15. CLOTRIMAZOLE [Concomitant]
     Dosage: 1 UNK, BID
     Route: 061
  16. EPIPEN [Concomitant]
     Dosage: 1 UNK, QD
     Route: 030
  17. TRICOR                             /00499301/ [Concomitant]
     Dosage: 145 MG, QD
     Route: 048
  18. IMODIUM A-D [Concomitant]
     Dosage: 2 MG, UNK
     Route: 048
  19. ATIVAN [Concomitant]
     Indication: ANXIETY
     Dosage: 0.5 MG, QD
     Route: 048
  20. ATIVAN [Concomitant]
     Indication: AGITATION
     Dosage: 1 MG, PRN
  21. ATIVAN [Concomitant]
     Indication: INSOMNIA
     Dosage: 1 MG, UNK
  22. ATIVAN [Concomitant]
     Dosage: 2 MG, UNK
  23. MILK OF MAGNESIA [Concomitant]
     Route: 048
  24. NITRO-BID [Concomitant]
  25. XYLOCAINE JELLY [Concomitant]
     Dosage: UNK UNK, TID
  26. TYLENOL                            /00020001/ [Concomitant]
     Dosage: 500 MG, UNK

REACTIONS (4)
  - Drug ineffective [Unknown]
  - Viral load increased [Unknown]
  - Medication error [Unknown]
  - Agitation [Unknown]
